FAERS Safety Report 5637727-X (Version None)
Quarter: 2008Q1

REPORT INFORMATION
  Report Type: 
  Country: None (occurrence: None)
  Receive Date: 20080220
  Receipt Date: 20080212
  Transmission Date: 20080703
  Serious: Yes (Other)
  Sender: FDA-Public Use
  Company Number: 2007BI011074

PATIENT
  Age: 43 Year
  Sex: Male

DRUGS (4)
  1. TYSABRI [Suspect]
     Indication: MULTIPLE SCLEROSIS
     Dosage: 300 MG; QM; IV
     Route: 042
     Dates: start: 20061026, end: 20071001
  2. SPIRULINA [Concomitant]
  3. VITAMIN CAP [Concomitant]
  4. PREDNISONE TAB [Concomitant]

REACTIONS (27)
  - ALANINE AMINOTRANSFERASE INCREASED [None]
  - ASPARTATE AMINOTRANSFERASE INCREASED [None]
  - AUTOIMMUNE HEPATITIS [None]
  - BACK PAIN [None]
  - BILIRUBIN CONJUGATED INCREASED [None]
  - BLOOD ALKALINE PHOSPHATASE INCREASED [None]
  - BLOOD BILIRUBIN INCREASED [None]
  - CHILLS [None]
  - CHROMATURIA [None]
  - DEHYDRATION [None]
  - FALL [None]
  - FATIGUE [None]
  - HEADACHE [None]
  - HEPATIC ENZYME INCREASED [None]
  - HEPATIC FIBROSIS [None]
  - HEPATITIS [None]
  - HEPATITIS VIRAL [None]
  - INFUSION RELATED REACTION [None]
  - LIVER INJURY [None]
  - MALAISE [None]
  - NEPHROLITHIASIS [None]
  - PAIN [None]
  - PROTEIN TOTAL INCREASED [None]
  - PRURITUS [None]
  - PYREXIA [None]
  - SERUM FERRITIN INCREASED [None]
  - WEIGHT DECREASED [None]
